FAERS Safety Report 4953906-9 (Version None)
Quarter: 2006Q1

REPORT INFORMATION
  Report Type: 
  Country: None (occurrence: None)
  Receive Date: 20060323
  Receipt Date: 20060323
  Transmission Date: 20060701
  Serious: Yes (Life-Threatening)
  Sender: FDA-Public Use
  Company Number: None

PATIENT
  Age: 52 Year
  Sex: Male
  Weight: 94 kg

DRUGS (13)
  1. DAPSONE [Suspect]
     Indication: PNEUMOCYSTIS JIROVECI INFECTION
     Dosage: 100 MG PO DAILY
     Route: 048
     Dates: start: 20060116, end: 20060120
  2. DAPSONE [Suspect]
     Indication: PROPHYLAXIS
     Dosage: 100 MG PO DAILY
     Route: 048
     Dates: start: 20060116, end: 20060120
  3. ALLEGRA [Concomitant]
  4. ASTEKUB [Concomitant]
  5. PROTONIX [Concomitant]
  6. HUMIBID LA [Concomitant]
  7. UNASYN [Concomitant]
  8. MORPHINE [Concomitant]
  9. TOBI [Concomitant]
  10. CIPRO [Concomitant]
  11. ZOSYN [Concomitant]
  12. PREDNISONE [Concomitant]
  13. HYCODAN [Concomitant]

REACTIONS (2)
  - FEELING ABNORMAL [None]
  - LABORATORY TEST ABNORMAL [None]
